FAERS Safety Report 7814573-X (Version None)
Quarter: 2011Q4

REPORT INFORMATION
  Report Type: 
  Country: None (occurrence: None)
  Receive Date: 20111014
  Receipt Date: 20111006
  Transmission Date: 20120403
  Serious: Yes (Death)
  Sender: FDA-Public Use
  Company Number: ES-BAXTER-2011BH031818

PATIENT
  Age: 60 Year
  Sex: Female

DRUGS (2)
  1. IMURAN [Concomitant]
     Indication: DERMATOMYOSITIS
     Route: 048
     Dates: start: 20110420, end: 20110727
  2. CYCLOPHOSPHAMIDE [Suspect]
     Indication: INTERSTITIAL LUNG DISEASE
     Route: 042
     Dates: start: 20110812, end: 20110812

REACTIONS (1)
  - CYTOMEGALOVIRUS INFECTION [None]
